FAERS Safety Report 17103058 (Version 1)
Quarter: 2019Q4

REPORT INFORMATION
  Report Type: Spontaneous
  Country: US (occurrence: US)
  Receive Date: 20191202
  Receipt Date: 20191202
  Transmission Date: 20200122
  Serious: Yes (Hospitalization)
  Sender: FDA-Public Use
  Company Number: None

PATIENT
  Age: 75 Year
  Sex: Female
  Weight: 50.1 kg

DRUGS (2)
  1. ANDEXXA [Suspect]
     Active Substance: ANDEXANET ALFA
     Indication: PROCOAGULANT THERAPY
     Dosage: ?          OTHER FREQUENCY:ONCE;?
     Route: 040
     Dates: start: 20190706, end: 20190706
  2. ANDEXXA [Suspect]
     Active Substance: ANDEXANET ALFA
     Indication: PROCOAGULANT THERAPY
     Dosage: ?          OTHER FREQUENCY:ONCE;?
     Route: 042
     Dates: start: 20190706, end: 20190706

REACTIONS (5)
  - Embolic stroke [None]
  - Ischaemic stroke [None]
  - Myocardial infarction [None]
  - Cerebral infarction [None]
  - Visual field defect [None]

NARRATIVE: CASE EVENT DATE: 20190706
